FAERS Safety Report 19448070 (Version 1)
Quarter: 2021Q2

REPORT INFORMATION
  Report Type: Spontaneous
  Country: US (occurrence: US)
  Receive Date: 20210622
  Receipt Date: 20210622
  Transmission Date: 20210717
  Serious: Yes (Death)
  Sender: FDA-Public Use
  Company Number: None

PATIENT
  Sex: Female
  Weight: 11.95 kg

DRUGS (6)
  1. ONCASPAR [Concomitant]
     Active Substance: PEGASPARGASE
  2. DAUNORUBICIN [Suspect]
     Active Substance: DAUNORUBICIN
  3. CYTARABINE. [Concomitant]
     Active Substance: CYTARABINE
  4. DEXAMETHASONE. [Concomitant]
     Active Substance: DEXAMETHASONE
  5. VINCRISTINE SULFATE. [Concomitant]
     Active Substance: VINCRISTINE SULFATE
  6. METHOTREXATE. [Concomitant]
     Active Substance: METHOTREXATE

REACTIONS (10)
  - Pancreatitis [None]
  - Haemorrhage [None]
  - Irritability [None]
  - Blood glucose decreased [None]
  - Sepsis [None]
  - Cardio-respiratory arrest [None]
  - Cardiac failure [None]
  - Thrombosis [None]
  - Arrhythmia [None]
  - Malaise [None]

NARRATIVE: CASE EVENT DATE: 20210618
